FAERS Safety Report 10004972 (Version 1)
Quarter: 2014Q1

REPORT INFORMATION
  Report Type: Spontaneous
  Country: US (occurrence: US)
  Receive Date: 20140312
  Receipt Date: 20140312
  Transmission Date: 20141002
  Serious: No
  Sender: FDA-Public Use
  Company Number: US-TEVA-468157USA

PATIENT
  Age: 19 Year
  Sex: Female

DRUGS (3)
  1. PARAGARD 380A [Suspect]
     Indication: CONTRACEPTION
     Route: 015
     Dates: start: 20140214, end: 20140310
  2. MISOPROSTAL [Concomitant]
     Indication: INDUCTION OF CERVIX RIPENING
     Dates: start: 20140213, end: 20140213
  3. PLAN B ONE-STEP [Concomitant]
     Indication: POST COITAL CONTRACEPTION
     Dosage: 1.5 MILLIGRAM DAILY;
     Route: 048
     Dates: start: 20140310, end: 20140310

REACTIONS (2)
  - Device expulsion [Recovered/Resolved]
  - Metrorrhagia [Unknown]
